FAERS Safety Report 7915945-5 (Version None)
Quarter: 2011Q4

REPORT INFORMATION
  Report Type: 
  Country: None (occurrence: None)
  Receive Date: 20111115
  Receipt Date: 20111103
  Transmission Date: 20120403
  Serious: Yes (Other)
  Sender: FDA-Public Use
  Company Number: KR-MERCK-1111KOR00010

PATIENT
  Age: 74 Year
  Sex: Male

DRUGS (9)
  1. BENSERAZIDE HYDROCHLORIDE AND LEVODOPA [Concomitant]
     Route: 048
  2. SINEMET [Suspect]
     Route: 048
  3. SINEMET [Suspect]
     Route: 048
  4. SINEMET [Suspect]
     Indication: PARKINSON'S DISEASE
     Route: 048
  5. SINEMET [Suspect]
     Route: 048
  6. BENSERAZIDE HYDROCHLORIDE AND LEVODOPA [Concomitant]
     Route: 048
  7. MIDAZOLAM [Concomitant]
     Indication: DYSKINESIA
     Route: 042
  8. BENSERAZIDE HYDROCHLORIDE AND LEVODOPA [Concomitant]
     Indication: PARKINSON'S DISEASE
     Route: 048
  9. MIDAZOLAM [Concomitant]
     Dosage: 0.4-0.8 UG/MIN/KG
     Route: 041

REACTIONS (6)
  - RENAL FAILURE ACUTE [None]
  - CONDITION AGGRAVATED [None]
  - OVERDOSE [None]
  - DEHYDRATION [None]
  - RHABDOMYOLYSIS [None]
  - DYSKINESIA [None]
